FAERS Safety Report 20835662 (Version 1)
Quarter: 2022Q2

REPORT INFORMATION
  Report Type: Spontaneous
  Country: FR (occurrence: FR)
  Receive Date: 20220516
  Receipt Date: 20220516
  Transmission Date: 20220720
  Serious: Yes (Other)
  Sender: FDA-Public Use
  Company Number: None

PATIENT
  Age: 52 Year
  Sex: Male

DRUGS (3)
  1. KEYTRUDA [Suspect]
     Active Substance: PEMBROLIZUMAB
     Indication: Metastatic bronchial carcinoma
     Dosage: UNK
     Route: 041
     Dates: start: 20200713, end: 20210512
  2. ALIMTA [Suspect]
     Active Substance: PEMETREXED DISODIUM
     Indication: Metastatic bronchial carcinoma
     Dosage: UNK
     Route: 041
     Dates: start: 20200713, end: 20201230
  3. CISPLATIN [Suspect]
     Active Substance: CISPLATIN
     Indication: Metastatic bronchial carcinoma
     Dosage: UNK
     Route: 041
     Dates: start: 20200713, end: 20200914

REACTIONS (1)
  - Renal failure [Not Recovered/Not Resolved]

NARRATIVE: CASE EVENT DATE: 20200828
